FAERS Safety Report 8403308-8 (Version None)
Quarter: 2012Q2

REPORT INFORMATION
  Report Type: 
  Country: None (occurrence: None)
  Receive Date: 20120601
  Receipt Date: 20080919
  Transmission Date: 20120825
  Serious: Yes (Death)
  Sender: FDA-Public Use
  Company Number: JP-BRISTOL-MYERS SQUIBB COMPANY-14334080

PATIENT
  Age: 48 Year
  Sex: Male

DRUGS (8)
  1. DEPAKENE [Concomitant]
  2. LEXIN [Concomitant]
  3. ROHYPNOL [Concomitant]
  4. BROTIZOLAM [Concomitant]
  5. ZOPICOOL [Concomitant]
  6. PHENOBARBITAL TAB [Suspect]
     Indication: INSOMNIA
     Dosage: DOSAGE FORM - TABLET
     Route: 048
     Dates: start: 20070101
  7. LITHIUM CARBONATE [Suspect]
     Indication: BIPOLAR I DISORDER
     Dosage: DOSE DECREASED TO 200MG(TID)SINCE 21-JUL-2008.
     Route: 048
     Dates: start: 20070301
  8. ABILIFY [Suspect]
     Indication: BIPOLAR I DISORDER
     Route: 048
     Dates: start: 20080703, end: 20080710

REACTIONS (2)
  - DISSEMINATED INTRAVASCULAR COAGULATION [None]
  - NEUROLEPTIC MALIGNANT SYNDROME [None]
